FAERS Safety Report 5040766-3 (Version None)
Quarter: 2006Q2

REPORT INFORMATION
  Report Type: 
  Country: None (occurrence: None)
  Receive Date: 20060601
  Receipt Date: 20060305
  Transmission Date: 20061013
  Serious: No
  Sender: FDA-Public Use
  Company Number: 2006PV009728

PATIENT
  Age: 47 Year
  Sex: Female
  Weight: 111.1313 kg

DRUGS (6)
  1. BYETTA [Suspect]
     Indication: DIABETES MELLITUS NON-INSULIN-DEPENDENT
     Dosage: 10 MCG; 5 MCG : BID; SC
     Route: 058
     Dates: start: 20051101, end: 20050101
  2. BYETTA [Suspect]
     Indication: DIABETES MELLITUS NON-INSULIN-DEPENDENT
     Dosage: 10 MCG; 5 MCG : BID; SC
     Route: 058
     Dates: start: 20051201
  3. GLUCOPHAGE [Concomitant]
  4. NOVOLIN [Concomitant]
  5. NOVOLOG [Concomitant]
  6. NPH INSULIN [Concomitant]

REACTIONS (6)
  - CYSTITIS [None]
  - DIZZINESS [None]
  - FEELING JITTERY [None]
  - NAUSEA [None]
  - PYREXIA [None]
  - TINNITUS [None]
